FAERS Safety Report 5601189-9 (Version None)
Quarter: 2008Q1

REPORT INFORMATION
  Report Type: 
  Country: None (occurrence: None)
  Receive Date: 20080122
  Receipt Date: 20080122
  Transmission Date: 20080703
  Serious: Yes (Other)
  Sender: FDA-Public Use
  Company Number: None

PATIENT
  Sex: Female
  Weight: 68.0396 kg

DRUGS (1)
  1. VYTORIN [Suspect]
     Indication: BLOOD CHOLESTEROL INCREASED
     Dosage: 1 EACH DAY PO
     Route: 048

REACTIONS (3)
  - ARTHRALGIA [None]
  - MYALGIA [None]
  - WALKING AID USER [None]
